FAERS Safety Report 7183219-9 (Version None)
Quarter: 2010Q4

REPORT INFORMATION
  Report Type: 
  Country: None (occurrence: None)
  Receive Date: 20101222
  Receipt Date: 20100122
  Transmission Date: 20110411
  Serious: No
  Sender: FDA-Public Use
  Company Number: A0841013A

PATIENT
  Age: 38 Year
  Sex: Female

DRUGS (4)
  1. FLONASE [Suspect]
     Dosage: 1SPR PER DAY
     Route: 045
     Dates: start: 20091231, end: 20100117
  2. ZYRTEC [Concomitant]
  3. NASALCROM [Concomitant]
  4. PRISTIQ [Concomitant]

REACTIONS (2)
  - NASAL ODOUR [None]
  - OROPHARYNGEAL PAIN [None]
